FAERS Safety Report 18858109 (Version 1)
Quarter: 2021Q1

REPORT INFORMATION
  Report Type: Spontaneous
  Country: US (occurrence: US)
  Receive Date: 20210205
  Receipt Date: 20210205
  Transmission Date: 20210420
  Serious: Yes (Death)
  Sender: FDA-Public Use
  Company Number: None

PATIENT
  Sex: Male

DRUGS (14)
  1. ABIRATERONE ACETATE 250MG TAB [Suspect]
     Active Substance: ABIRATERONE ACETATE
     Indication: PROSTATE CANCER
     Dosage: ?          OTHER DOSE:4TAB (1000MG);?
     Route: 048
     Dates: start: 20201020, end: 20210204
  2. FLUCONAZOLE. [Concomitant]
     Active Substance: FLUCONAZOLE
  3. LIDOCAINE. [Concomitant]
     Active Substance: LIDOCAINE
  4. AMOX/K CLAV [Concomitant]
     Active Substance: AMOXICILLIN\CLAVULANATE POTASSIUM
  5. ATORVASTATIN [Concomitant]
     Active Substance: ATORVASTATIN
  6. CARVEDILOL. [Concomitant]
     Active Substance: CARVEDILOL
  7. CEFUROXIME. [Concomitant]
     Active Substance: CEFUROXIME
  8. PREDNISONE. [Concomitant]
     Active Substance: PREDNISONE
  9. SODIUM BICAR [Concomitant]
  10. CIPROFLOXACIN. [Concomitant]
     Active Substance: CIPROFLOXACIN
  11. ASPIRIN. [Concomitant]
     Active Substance: ASPIRIN
  12. FEROSUL [Concomitant]
     Active Substance: FERROUS SULFATE
  13. OXYCODONE [Concomitant]
     Active Substance: OXYCODONE
  14. HYDROOMORPHON [Concomitant]

REACTIONS (1)
  - Death [None]
